FAERS Safety Report 16983343 (Version 1)
Quarter: 2019Q4

REPORT INFORMATION
  Report Type: Spontaneous
  Country: US (occurrence: US)
  Receive Date: 20191101
  Receipt Date: 20191101
  Transmission Date: 20200122
  Serious: No
  Sender: FDA-Public Use
  Company Number: US-009507513-1910USA015126

PATIENT
  Age: 39 Year
  Sex: Female

DRUGS (2)
  1. FOLLISTIM AQ [Suspect]
     Active Substance: FOLLITROPIN
     Indication: IN VITRO FERTILISATION
     Dosage: 900 UNITS (U), 300 INTERNATIONAL UNIT (IU), ONCE A DAY
     Route: 058
     Dates: start: 20191020
  2. PUREGON PEN [DEVICE] [Suspect]
     Active Substance: DEVICE

REACTIONS (5)
  - Product quality issue [Unknown]
  - Product dose omission [Unknown]
  - Stress [Unknown]
  - Device defective [Unknown]
  - Product administration error [Unknown]

NARRATIVE: CASE EVENT DATE: 201910
